FAERS Safety Report 10260923 (Version 1)
Quarter: 2014Q2

REPORT INFORMATION
  Report Type: Spontaneous
  Country: SE (occurrence: SE)
  Receive Date: 20140626
  Receipt Date: 20140626
  Transmission Date: 20141212
  Serious: Yes (Hospitalization, Disabling, Other)
  Sender: FDA-Public Use
  Company Number: SE-009507513-1406SWE011636

PATIENT
  Age: 86 Year
  Sex: Male

DRUGS (8)
  1. FOSAMAX [Suspect]
     Indication: OSTEOPOROSIS
     Dosage: 70 MG, QW
     Route: 048
  2. CALCIUM (UNSPECIFIED) [Concomitant]
  3. NEXIUM [Concomitant]
  4. PREDNISOLONE [Concomitant]
  5. MIRTAZAPINE [Concomitant]
  6. CYANOCOBALAMIN [Concomitant]
  7. FOLACIN [Concomitant]
  8. BISOPROLOL [Concomitant]

REACTIONS (7)
  - Cerebrovascular accident [Not Recovered/Not Resolved]
  - Gastrointestinal tube insertion [Unknown]
  - Dysphagia [Unknown]
  - Abdominal pain upper [Not Recovered/Not Resolved]
  - Incorrect route of drug administration [Unknown]
  - Wrong technique in drug usage process [Unknown]
  - Drug administration error [Unknown]
